FAERS Safety Report 16668967 (Version 1)
Quarter: 2019Q3

REPORT INFORMATION
  Report Type: Spontaneous
  Country: US (occurrence: US)
  Receive Date: 20190805
  Receipt Date: 20190805
  Transmission Date: 20191004
  Serious: No
  Sender: FDA-Public Use
  Company Number: US-MYLANLABS-2019M1070430

PATIENT

DRUGS (1)
  1. GLATIRAMER ACETATE INJECTION [Suspect]
     Active Substance: GLATIRAMER ACETATE
     Indication: PRODUCT USED FOR UNKNOWN INDICATION
     Dosage: UNK

REACTIONS (11)
  - Dry mouth [Unknown]
  - Balance disorder [Unknown]
  - Anxiety [Unknown]
  - Muscle spasms [Unknown]
  - Pain in extremity [Unknown]
  - Asthenia [Unknown]
  - Visual impairment [Unknown]
  - Disturbance in attention [Unknown]
  - Oral discomfort [Unknown]
  - Feeling abnormal [Unknown]
  - Headache [Unknown]
